FAERS Safety Report 16697596 (Version 3)
Quarter: 2021Q3

REPORT INFORMATION
  Report Type: Report from Study
  Country: JP (occurrence: JP)
  Receive Date: 20190813
  Receipt Date: 20210924
  Transmission Date: 20211014
  Serious: Yes (Death, Other)
  Sender: FDA-Public Use
  Company Number: JP-ASTELLAS-2019JP017180

PATIENT
  Sex: Male
  Weight: 54 kg

DRUGS (33)
  1. FEBURIC [Concomitant]
     Active Substance: FEBUXOSTAT
     Indication: HYPERURICAEMIA
     Dosage: 10 MG/DAY, UNKNOWN FREQ.
     Route: 048
     Dates: end: 20190804
  2. SPIRONOLACTONE. [Concomitant]
     Active Substance: SPIRONOLACTONE
     Indication: OEDEMA PERIPHERAL
     Dosage: 50 MG/DAY, UNKNOWN FREQ.
     Route: 048
     Dates: end: 20190801
  3. RECOMODULIN [Concomitant]
     Active Substance: THROMBOMODULIN ALFA
     Indication: DISSEMINATED INTRAVASCULAR COAGULATION
     Dosage: 7020 U/DAY, UNKNOWN FREQ.
     Route: 065
     Dates: start: 20190701, end: 20190707
  4. JANUVIA [Concomitant]
     Active Substance: SITAGLIPTIN PHOSPHATE
     Indication: TYPE 2 DIABETES MELLITUS
     Dosage: 25 MG/DAY, UNKNOWN FREQ.
     Route: 048
     Dates: end: 20190804
  5. FILGRASTIM RECOMBINANT [Concomitant]
     Dosage: 150 ?G/DAY, UNKNOWN FREQ.
     Route: 058
     Dates: start: 20190715, end: 20190717
  6. ACICLOVIR [Concomitant]
     Active Substance: ACYCLOVIR
     Indication: PROPHYLAXIS
     Dosage: 200 MG/DAY, UNKNOWN FREQ.
     Route: 048
     Dates: start: 20190706, end: 20190804
  7. ACELIO [Concomitant]
     Active Substance: ACETAMINOPHEN
     Indication: CHEMOTHERAPY
     Dosage: 1 G/DAY, UNKNOWN FREQ.
     Route: 065
     Dates: start: 20190730, end: 20190730
  8. DEXART [Concomitant]
     Active Substance: DEXAMETHASONE SODIUM PHOSPHATE
     Indication: CHEMOTHERAPY
     Dosage: 19.8 MG/DAY, UNKNOWN FREQ.
     Route: 065
     Dates: start: 20190730, end: 20190730
  9. ASP2215 [Suspect]
     Active Substance: GILTERITINIB
     Indication: ACUTE MYELOID LEUKAEMIA REFRACTORY
     Route: 048
     Dates: start: 20190621, end: 20190629
  10. LEVOFLOXACIN HEMIHYDRATE [Concomitant]
     Active Substance: LEVOFLOXACIN
     Indication: PROPHYLAXIS
     Dosage: 500 MG/DAY, UNKNOWN FREQ.
     Route: 048
     Dates: start: 20190628, end: 20190628
  11. LEVOFLOXACIN HEMIHYDRATE [Concomitant]
     Active Substance: LEVOFLOXACIN
     Dosage: 250 MG/DAY, UNKNOWN FREQ.
     Route: 048
     Dates: start: 20190629, end: 20190704
  12. MAGNESIUM [Concomitant]
     Active Substance: MAGNESIUM
     Indication: CONSTIPATION
     Dosage: 660 MG/DAY, UNKNOWN FREQ.
     Route: 048
     Dates: end: 20190804
  13. FILGRASTIM RECOMBINANT [Concomitant]
     Dosage: 150 ?G/DAY, UNKNOWN FREQ.
     Route: 058
     Dates: start: 20190720, end: 20190720
  14. PREDONINE [Concomitant]
     Active Substance: PREDNISOLONE
     Indication: PLASMA CELL MYELOMA
     Route: 048
     Dates: start: 20190706, end: 20190804
  15. TRANEXAMIC ACID. [Concomitant]
     Active Substance: TRANEXAMIC ACID
     Indication: EPISTAXIS
     Dosage: UNK UNK, UNKNOWN FREQ.
     Route: 065
     Dates: start: 20190712
  16. ZOSYN [Concomitant]
     Active Substance: PIPERACILLIN SODIUM\TAZOBACTAM SODIUM
     Indication: FEBRILE NEUTROPENIA
     Route: 065
     Dates: start: 20190714, end: 20190725
  17. ASP2215 [Suspect]
     Active Substance: GILTERITINIB
     Route: 048
     Dates: start: 20190706, end: 20190801
  18. K?SUPPLY [Concomitant]
     Active Substance: POTASSIUM CHLORIDE
     Indication: HYPOKALAEMIA
     Dosage: 2400 MG/DAY, UNKNOWN FREQ.
     Route: 048
     Dates: end: 20190801
  19. REVLIMID [Concomitant]
     Active Substance: LENALIDOMIDE
     Indication: PLASMA CELL MYELOMA
     Route: 048
     Dates: start: 20190717, end: 20190731
  20. POLARAMINE [Concomitant]
     Active Substance: DEXCHLORPHENIRAMINE MALEATE
     Indication: CHEMOTHERAPY
     Dosage: 1 A/DAY, UNKNOWN FREQ.
     Route: 065
     Dates: start: 20190730, end: 20190730
  21. CYTARABINE. [Concomitant]
     Active Substance: CYTARABINE
     Indication: PLASMA CELL MYELOMA
     Dosage: UNK UNK, UNKNOWN FREQ.
     Route: 065
     Dates: start: 20190801
  22. ACLARUBICIN HYDROCHLORIDE [Concomitant]
     Active Substance: ACLARUBICIN HYDROCHLORIDE
     Indication: PLASMA CELL MYELOMA
     Dosage: UNK UNK, UNKNOWN FREQ.
     Route: 065
     Dates: start: 20190801
  23. ASP2215 [Suspect]
     Active Substance: GILTERITINIB
     Route: 048
     Dates: start: 20190702, end: 20190705
  24. HYDREA [Suspect]
     Active Substance: HYDROXYUREA
     Indication: ACUTE MYELOID LEUKAEMIA
     Dosage: 1000 MG/DAY, UNKNOWN FREQ.
     Route: 048
     Dates: start: 20190614, end: 20190627
  25. LANSOPRAZOLE. [Concomitant]
     Active Substance: LANSOPRAZOLE
     Indication: GASTROOESOPHAGEAL REFLUX DISEASE
     Dosage: 15 MG/DAY, UNKNOWN FREQ.
     Route: 048
     Dates: end: 20190804
  26. RECOMODULIN [Concomitant]
     Active Substance: THROMBOMODULIN ALFA
     Dosage: 7020 U/DAY, UNKNOWN FREQ.
     Route: 065
     Dates: start: 20190715, end: 20190724
  27. FILGRASTIM RECOMBINANT [Concomitant]
     Indication: NEUTROPENIA
     Dosage: 300 ?G/DAY, UNKNOWN FREQ.
     Route: 058
     Dates: start: 20190629, end: 20190630
  28. ORGARAN [Concomitant]
     Active Substance: DANAPAROID SODIUM
     Indication: DISSEMINATED INTRAVASCULAR COAGULATION
     Dosage: 1250 U/DAY UNKNOWN FREQ.
     Route: 065
     Dates: start: 20190728, end: 20190731
  29. ITRACONAZOLE. [Interacting]
     Active Substance: ITRACONAZOLE
     Indication: PROPHYLAXIS
     Dosage: 20 ML/DAY, UNKNOWN FREQ.
     Route: 048
     Dates: start: 20190628, end: 20190705
  30. DAIPHEN [Concomitant]
     Active Substance: SULFAMETHOXAZOLE\TRIMETHOPRIM
     Indication: PROPHYLAXIS
     Dosage: 0.5 DF/DAY, UNKNOWN FREQ.
     Route: 048
     Dates: end: 20190804
  31. THYRADIN S [Concomitant]
     Active Substance: LEVOTHYROXINE SODIUM
     Indication: HYPOTHYROIDISM
     Dosage: 37.5 MG/DAY, UNKNOWN FREQ.
     Route: 048
     Dates: end: 20190804
  32. DARZALEX [Concomitant]
     Active Substance: DARATUMUMAB
     Indication: PLASMA CELL MYELOMA
     Dosage: 870 MG/DAY, UNKNOWN FREQ.
     Route: 065
     Dates: start: 20190730, end: 20190730
  33. ONDANSETRON [Concomitant]
     Active Substance: ONDANSETRON
     Indication: CHEMOTHERAPY
     Dosage: 1 V/DAY, UNKNOWN FREQ.
     Route: 065
     Dates: start: 20190730, end: 20190730

REACTIONS (7)
  - Drug interaction [Unknown]
  - Plasma cell myeloma [Fatal]
  - Neutropenia [Recovered/Resolved]
  - Hyperaesthesia [Recovered/Resolved]
  - Febrile neutropenia [Recovered/Resolved]
  - Disseminated intravascular coagulation [Recovered/Resolved]
  - Epistaxis [Recovered/Resolved]

NARRATIVE: CASE EVENT DATE: 20190628
